FAERS Safety Report 7509859-2 (Version None)
Quarter: 2011Q2

REPORT INFORMATION
  Report Type: 
  Country: None (occurrence: None)
  Receive Date: 20110527
  Receipt Date: 20110518
  Transmission Date: 20111010
  Serious: Yes (Other)
  Sender: FDA-Public Use
  Company Number: B0719944A

PATIENT
  Sex: Male

DRUGS (3)
  1. LAMICTAL [Suspect]
     Dosage: 25MG SEE DOSAGE TEXT
     Route: 048
     Dates: start: 20110412, end: 20110426
  2. PAROXETINE HCL [Concomitant]
  3. OXAZEPAM [Concomitant]

REACTIONS (4)
  - DERMATITIS BULLOUS [None]
  - SKIN FISSURES [None]
  - PRURITUS [None]
  - CONDITION AGGRAVATED [None]
